FAERS Safety Report 7799480-3 (Version None)
Quarter: 2011Q4

REPORT INFORMATION
  Report Type: 
  Country: None (occurrence: None)
  Receive Date: 20111006
  Receipt Date: 20110928
  Transmission Date: 20120403
  Serious: Yes (Hospitalization)
  Sender: FDA-Public Use
  Company Number: PHHO2011LB16451

PATIENT
  Sex: Male
  Weight: 65 kg

DRUGS (3)
  1. AFINITOR [Suspect]
     Dosage: 10 MG, UNK
     Route: 048
     Dates: start: 20110917, end: 20110923
  2. AFINITOR [Suspect]
     Dosage: 10 MG, UNK
     Route: 048
     Dates: start: 20110929
  3. SANDOSTATIN LAR [Concomitant]
     Indication: DIARRHOEA

REACTIONS (8)
  - ASPARTATE AMINOTRANSFERASE INCREASED [None]
  - DEHYDRATION [None]
  - CARCINOID SYNDROME [None]
  - DIARRHOEA [None]
  - BLOOD BILIRUBIN INCREASED [None]
  - HYPOTENSION [None]
  - ALANINE AMINOTRANSFERASE INCREASED [None]
  - CONCOMITANT DISEASE PROGRESSION [None]
